FAERS Safety Report 26180663 (Version 1)
Quarter: 2025Q4

REPORT INFORMATION
  Report Type: Spontaneous
  Country: US (occurrence: None)
  Receive Date: 20251219
  Receipt Date: 20251219
  Transmission Date: 20260118
  Serious: Yes (Hospitalization)
  Sender: FDA-CTU
  Company Number: None

PATIENT
  Age: 59 Year
  Sex: Male
  Weight: 89.25 kg

DRUGS (1)
  1. XTANDI [Suspect]
     Active Substance: ENZALUTAMIDE
     Indication: Prostate cancer
     Dosage: OTHER FREQUENCY : 4 QD;
     Route: 048
     Dates: start: 20250112

REACTIONS (7)
  - Therapeutic product effect incomplete [None]
  - Hypertension [None]
  - Urinary retention [None]
  - Renal disorder [None]
  - Blood urine [None]
  - Dysuria [None]
  - Pollakiuria [None]

NARRATIVE: CASE EVENT DATE: 20251124
